FAERS Safety Report 10380200 (Version 1)
Quarter: 2014Q3

REPORT INFORMATION
  Report Type: Spontaneous
  Country: US (occurrence: US)
  Receive Date: 20140813
  Receipt Date: 20140813
  Transmission Date: 20150326
  Serious: Yes (Other)
  Sender: FDA-Public Use
  Company Number: US-BRISTOL-MYERS SQUIBB COMPANY-21284195

PATIENT
  Age: 73 Year
  Sex: Male
  Weight: 172.33 kg

DRUGS (5)
  1. WELLBUTRIN [Concomitant]
     Active Substance: BUPROPION HYDROCHLORIDE
  2. ABILIFY [Suspect]
     Active Substance: ARIPIPRAZOLE
     Dates: start: 2005, end: 2008
  3. ZYPREXA [Concomitant]
     Active Substance: OLANZAPINE
  4. DEPAKOTE [Concomitant]
     Active Substance: DIVALPROEX SODIUM
  5. LITHIUM [Concomitant]
     Active Substance: LITHIUM CARBONATE

REACTIONS (5)
  - Drug ineffective [Unknown]
  - Weight increased [Unknown]
  - Chronic obstructive pulmonary disease [Unknown]
  - Diabetes mellitus [Unknown]
  - Cardiac failure congestive [Unknown]
